FAERS Safety Report 8765156 (Version 2)
Quarter: 2013Q4

REPORT INFORMATION
  Report Type: Report from Study
  Country: DE (occurrence: DE)
  Receive Date: 20120903
  Receipt Date: 20131101
  Transmission Date: 20140711
  Serious: Yes (Other)
  Sender: FDA-Public Use
  Company Number: DE-MERCK-1208DEU011131

PATIENT
  Age: 32 Year
  Sex: 0
  Weight: 74 kg

DRUGS (3)
  1. PEGINTERFERON ALFA-2B [Suspect]
     Indication: HEPATITIS C
     Dosage: UNK
     Route: 058
     Dates: start: 20061024, end: 20070510
  2. REBETOL [Suspect]
     Indication: HEPATITIS C
     Dosage: 1000 MG QD
     Route: 048
     Dates: start: 20061024, end: 20070510
  3. TENOFOVIR [Concomitant]
     Indication: HIV INFECTION
     Dosage: 200 MG, QD COMBINATION DRUG
     Route: 048
     Dates: start: 20061110

REACTIONS (2)
  - Nausea [Recovering/Resolving]
  - Weight decreased [Recovering/Resolving]
